FAERS Safety Report 24786240 (Version 1)
Quarter: 2024Q4

REPORT INFORMATION
  Report Type: Report from Study
  Country: US (occurrence: US)
  Receive Date: 20241229
  Receipt Date: 20241229
  Transmission Date: 20250114
  Serious: Yes (Hospitalization, Other)
  Sender: ABBVIE
  Company Number: US-ABBVIE-6029936

PATIENT
  Age: 82 Year
  Sex: Female
  Weight: 65.77 kg

DRUGS (1)
  1. HUMIRA [Suspect]
     Active Substance: ADALIMUMAB
     Indication: Rheumatoid arthritis
     Dosage: CITRATE FREE, FORM STRENGTH: 40 MILIGRAM
     Route: 058
     Dates: start: 2014

REACTIONS (9)
  - Aortic valve incompetence [Not Recovered/Not Resolved]
  - Sepsis [Unknown]
  - Haematoma [Recovering/Resolving]
  - Myocardial infarction [Not Recovered/Not Resolved]
  - Somnolence [Recovered/Resolved]
  - Incoherent [Recovered/Resolved]
  - Pneumonia [Recovered/Resolved]
  - Escherichia infection [Recovered/Resolved]
  - Cardiac failure congestive [Not Recovered/Not Resolved]

NARRATIVE: CASE EVENT DATE: 20241101
